FAERS Safety Report 4655220-8 (Version None)
Quarter: 2005Q2

REPORT INFORMATION
  Report Type: 
  Country: None (occurrence: None)
  Receive Date: 20050506
  Receipt Date: 20041203
  Transmission Date: 20051028
  Serious: Yes (Other)
  Sender: FDA-Public Use
  Company Number: GB-GLAXOSMITHKLINE-B0361233A

PATIENT
  Sex: Male

DRUGS (1)
  1. PAROXETINE HYDROCHLORIDE [Suspect]
     Route: 065
     Dates: start: 20010101

REACTIONS (10)
  - AGGRESSION [None]
  - AGORAPHOBIA [None]
  - BALANCE DISORDER [None]
  - DRUG WITHDRAWAL SYNDROME [None]
  - EMOTIONAL DISTRESS [None]
  - HYPERHIDROSIS [None]
  - LIBIDO DECREASED [None]
  - PAIN [None]
  - PANIC REACTION [None]
  - SOCIAL AVOIDANT BEHAVIOUR [None]
